FAERS Safety Report 5914576-6 (Version None)
Quarter: 2008Q4

REPORT INFORMATION
  Report Type: 
  Country: None (occurrence: None)
  Receive Date: 20081010
  Receipt Date: 20080929
  Transmission Date: 20090506
  Serious: Yes (Other)
  Sender: FDA-Public Use
  Company Number: US-RANBAXY-2008US-15843

PATIENT

DRUGS (6)
  1. ISOTRETINOIN [Suspect]
     Indication: DRUG USE FOR UNKNOWN INDICATION
     Dosage: 30 MG, UNK
     Route: 048
     Dates: start: 20080529, end: 20080612
  2. ISOTRETINOIN [Suspect]
     Dosage: 30 MG, BID
     Route: 048
     Dates: start: 20070807, end: 20080226
  3. MINOCYCLINE HCL [Concomitant]
     Indication: ACNE
     Dosage: 100 MG, BID
     Route: 048
     Dates: start: 20080612
  4. DOXYCYCLINE [Concomitant]
     Indication: ACNE
     Dosage: 100 MG, BID
     Route: 048
     Dates: start: 20080401, end: 20080612
  5. CLEOCIN [Concomitant]
     Indication: ACNE
     Dosage: 1 %, BID
     Route: 061
     Dates: start: 20080226
  6. RETIN-A [Suspect]
     Indication: ACNE
     Dosage: 0.1 %, QD
     Route: 061
     Dates: start: 20080226

REACTIONS (3)
  - DEPRESSION [None]
  - PREGNANCY [None]
  - TREATMENT NONCOMPLIANCE [None]
